FAERS Safety Report 7439910-X (Version None)
Quarter: 2011Q2

REPORT INFORMATION
  Report Type: 
  Country: None (occurrence: None)
  Receive Date: 20110427
  Receipt Date: 20110418
  Transmission Date: 20111010
  Serious: Yes (Hospitalization, Other)
  Sender: FDA-Public Use
  Company Number: JP-AMGEN-JPNCT2010009643

PATIENT
  Age: 62 Year
  Sex: Male
  Weight: 57 kg

DRUGS (19)
  1. CALCIUM LEVOFOLINATE [Suspect]
     Indication: COLORECTAL CANCER
     Route: 041
     Dates: start: 20100729
  2. CORTICOSTEROIDS [Concomitant]
     Indication: PROPHYLAXIS
     Dosage: UNK
  3. DECADRON [Concomitant]
     Dosage: UNK
     Route: 042
  4. OXINORM [Concomitant]
     Route: 048
  5. PARIET [Concomitant]
     Dosage: UNK
     Route: 048
  6. PANITUMUMAB [Suspect]
     Indication: COLORECTAL CANCER
     Dosage: 5.3 MG/KG, Q2WK
     Route: 041
     Dates: start: 20100729
  7. IRINOTECAN HCL [Suspect]
     Indication: COLORECTAL CANCER
     Route: 041
     Dates: start: 20100729
  8. ANTIHISTAMINES [Concomitant]
     Indication: PROPHYLAXIS
     Dosage: UNK
     Route: 065
  9. KYTRIL [Concomitant]
     Route: 042
  10. DECADRON [Concomitant]
     Route: 042
  11. PYDOXAL [Concomitant]
     Dosage: UNK
     Route: 048
  12. CETUXIMAB [Suspect]
  13. OXYCONTIN [Concomitant]
     Dosage: UNK
     Route: 048
  14. ZOPICOOL [Concomitant]
     Dosage: UNK
     Route: 048
  15. LORFENAMIN [Concomitant]
     Dosage: UNK
     Route: 048
  16. VOLTAREN [Concomitant]
     Dosage: UNK
     Route: 048
  17. MYSLEE [Concomitant]
     Dosage: UNK
     Route: 048
  18. CETUXIMAB [Suspect]
     Indication: COLORECTAL CANCER
     Route: 041
     Dates: start: 20100401, end: 20100701
  19. FLUOROURACIL [Suspect]
     Indication: COLORECTAL CANCER
     Route: 041
     Dates: start: 20100729

REACTIONS (6)
  - DERMATITIS ACNEIFORM [None]
  - DEHYDRATION [None]
  - HEPATIC FUNCTION ABNORMAL [None]
  - ABDOMINAL ABSCESS [None]
  - ANAEMIA [None]
  - BLOOD SODIUM INCREASED [None]
